FAERS Safety Report 25678021 (Version 2)
Quarter: 2025Q3

REPORT INFORMATION
  Report Type: Report from Study
  Country: EU (occurrence: EU)
  Receive Date: 20250813
  Receipt Date: 20250822
  Transmission Date: 20251021
  Serious: Yes (Death, Hospitalization, Other)
  Sender: VERITY PHARMACEUTICALS INC.
  Company Number: EU-VER-202500071

PATIENT
  Sex: Male

DRUGS (2)
  1. TRIPTORELIN PAMOATE [Suspect]
     Active Substance: TRIPTORELIN PAMOATE
     Indication: Prostate cancer
     Route: 030
     Dates: start: 20240803
  2. TRIPTORELIN PAMOATE [Suspect]
     Active Substance: TRIPTORELIN PAMOATE
     Indication: Prostate cancer
     Route: 030
     Dates: start: 20250204

REACTIONS (2)
  - Bladder operation [Unknown]
  - Prostate cancer [Fatal]
